FAERS Safety Report 6458756-2 (Version None)
Quarter: 2009Q4

REPORT INFORMATION
  Report Type: 
  Country: None (occurrence: None)
  Receive Date: 20091127
  Receipt Date: 20091117
  Transmission Date: 20100525
  Serious: Yes (Other)
  Sender: FDA-Public Use
  Company Number: ES-ROCHE-669524

PATIENT
  Sex: Female

DRUGS (1)
  1. XENICAL [Suspect]
     Indication: WEIGHT CONTROL
     Route: 048
     Dates: start: 20091001, end: 20091117

REACTIONS (5)
  - ANXIETY [None]
  - CHILLS [None]
  - DIARRHOEA [None]
  - DIZZINESS [None]
  - MIGRAINE [None]
